FAERS Safety Report 16025550 (Version 4)
Quarter: 2019Q2

REPORT INFORMATION
  Report Type: Spontaneous
  Country: US (occurrence: US)
  Receive Date: 20190302
  Receipt Date: 20190415
  Transmission Date: 20190711
  Serious: Yes (Other)
  Sender: FDA-Public Use
  Company Number: US-BRISTOL-MYERS SQUIBB COMPANY-BMS-2019-021305

PATIENT
  Sex: Male

DRUGS (1)
  1. SPRYCEL [Suspect]
     Active Substance: DASATINIB
     Indication: PRODUCT USED FOR UNKNOWN INDICATION
     Dosage: 100 MILLIGRAM, QD
     Route: 048
     Dates: start: 20190301

REACTIONS (14)
  - Dyspepsia [Unknown]
  - Gingival bleeding [Unknown]
  - Epistaxis [Unknown]
  - Influenza [Unknown]
  - Weight decreased [Unknown]
  - Headache [Unknown]
  - Myalgia [Unknown]
  - Abdominal pain upper [Unknown]
  - White blood cell count abnormal [Unknown]
  - Weight fluctuation [Unknown]
  - Dyspnoea [Unknown]
  - Asthenia [Unknown]
  - Dizziness [Unknown]
  - Chills [Unknown]
